FAERS Safety Report 4515629-X (Version None)
Quarter: 2004Q4

REPORT INFORMATION
  Report Type: 
  Country: None (occurrence: None)
  Receive Date: 20041126
  Receipt Date: 20041116
  Transmission Date: 20050328
  Serious: Yes (Other)
  Sender: FDA-Public Use
  Company Number: 2004096337

PATIENT
  Age: 63 Year
  Sex: Female

DRUGS (10)
  1. LIPITOR [Suspect]
     Indication: ILL-DEFINED DISORDER
     Dosage: 10 MG (1 IN 1 D)
  2. TOCOPHEROL CONCENTRATE CAP [Concomitant]
  3. POTASSIUM CHLORIDE [Concomitant]
  4. MODURETIC ^MSD^(AMILORIDE HYDROCHLORIDE, HYDROCHLOROTHIAZIDE) [Concomitant]
  5. CALCIUM CARBONATE(CALCIUM CARBONATE) [Concomitant]
  6. CELECOXIB(CELECOXIB) [Concomitant]
  7. LEVOTHYROXINE SODIUM [Concomitant]
  8. GLUCOSAMINE(GLUCOSAMINE) [Concomitant]
  9. VITAMIN B (VITAMIN B) [Concomitant]
  10. ASCORBIC ACID [Concomitant]

REACTIONS (3)
  - AMNESIA [None]
  - HIP ARTHROPLASTY [None]
  - MYALGIA [None]
